FAERS Safety Report 17724368 (Version 2)
Quarter: 2021Q1

REPORT INFORMATION
  Report Type: Spontaneous
  Country: FR (occurrence: FR)
  Receive Date: 20200429
  Receipt Date: 20210226
  Transmission Date: 20210419
  Serious: Yes (Death, Other)
  Sender: FDA-Public Use
  Company Number: FR-JNJFOC-20200433502

PATIENT

DRUGS (6)
  1. RITONAVIR. [Suspect]
     Active Substance: RITONAVIR
     Indication: COVID-19
     Route: 065
  2. METOCLOPRAMIDE. [Concomitant]
     Active Substance: METOCLOPRAMIDE
     Indication: COVID-19
     Route: 065
  3. LEVOFLOXACIN. [Concomitant]
     Active Substance: LEVOFLOXACIN
     Indication: COVID-19
     Route: 065
  4. HYDROXYCHLOROQUINE [Suspect]
     Active Substance: HYDROXYCHLOROQUINE
     Indication: COVID-19
     Route: 065
  5. DARUNAVIR [Suspect]
     Active Substance: DARUNAVIR
     Indication: BEHAVIOUR DISORDER
     Route: 048
  6. AZITHROMYCINE [Suspect]
     Active Substance: AZITHROMYCIN
     Indication: COVID-19
     Route: 065

REACTIONS (9)
  - Liver disorder [Unknown]
  - Cardiac disorder [Fatal]
  - Adverse event [Fatal]
  - Off label use [Unknown]
  - COVID-19 [Unknown]
  - Eye disorder [Unknown]
  - Product use in unapproved indication [Unknown]
  - Adverse event [Unknown]
  - Gastrointestinal disorder [Unknown]

NARRATIVE: CASE EVENT DATE: 2020
